FAERS Safety Report 15440988 (Version 1)
Quarter: 2018Q3

REPORT INFORMATION
  Report Type: Report from Study
  Country: IE (occurrence: IE)
  Receive Date: 20180928
  Receipt Date: 20180928
  Transmission Date: 20181010
  Serious: Yes (Other)
  Sender: FDA-Public Use
  Company Number: IE-JNJFOC-20180923581

PATIENT
  Age: 31 Year
  Sex: Male

DRUGS (5)
  1. SERLAN [Concomitant]
  2. VALIUM [Concomitant]
     Active Substance: DIAZEPAM
     Route: 058
     Dates: start: 20180627
  3. AUGMENTIN [Concomitant]
     Active Substance: AMOXICILLIN\CLAVULANATE POTASSIUM
  4. TREMFYA [Suspect]
     Active Substance: GUSELKUMAB
     Indication: PSORIASIS
     Route: 058
     Dates: start: 20180627
  5. DELTACORTRIL [Concomitant]
     Active Substance: PREDNISOLONE

REACTIONS (1)
  - Lower respiratory tract infection [Recovering/Resolving]

NARRATIVE: CASE EVENT DATE: 20180914
